FAERS Safety Report 20832677 (Version 1)
Quarter: 2022Q2

REPORT INFORMATION
  Report Type: Spontaneous
  Country: US (occurrence: US)
  Receive Date: 20220516
  Receipt Date: 20220516
  Transmission Date: 20220721
  Serious: No
  Sender: FDA-Public Use
  Company Number: US-BAYER-2022A058622

PATIENT
  Age: 68 Year
  Sex: Female

DRUGS (1)
  1. MIRALAX [Suspect]
     Active Substance: POLYETHYLENE GLYCOL 3350
     Dosage: 4 CAPFULS MIXED WITH 16 OF WATER THEN SWITCHED TO 1 CAPFUL MIXED WITH 16 OZ OF WATER DOSE
     Route: 048
     Dates: start: 20220326, end: 20220420

REACTIONS (2)
  - Incorrect dose administered [Recovered/Resolved]
  - Product prescribing issue [Recovered/Resolved]

NARRATIVE: CASE EVENT DATE: 20220326
